APPROVED DRUG PRODUCT: CHEWTADZY
Active Ingredient: TADALAFIL
Strength: 5MG
Dosage Form/Route: TABLET, CHEWABLE;ORAL
Application: N218527 | Product #001
Applicant: B BETTER LLC
Approved: Jun 28, 2024 | RLD: Yes | RS: No | Type: DISCN